FAERS Safety Report 25141220 (Version 1)
Quarter: 2025Q1

REPORT INFORMATION
  Report Type: Spontaneous
  Country: CN (occurrence: CN)
  Receive Date: 20250331
  Receipt Date: 20250331
  Transmission Date: 20250408
  Serious: Yes (Life-Threatening, Hospitalization)
  Sender: PFIZER
  Company Number: CN-PFIZER INC-PV202500037020

PATIENT
  Age: 7 Year
  Sex: Male
  Weight: 35 kg

DRUGS (7)
  1. CYTARABINE [Suspect]
     Active Substance: CYTARABINE
     Indication: Acute lymphocytic leukaemia
     Dosage: 0.03 G, 1X/DAY
     Route: 037
     Dates: start: 20250318, end: 20250318
  2. METHOTREXATE SODIUM [Suspect]
     Active Substance: METHOTREXATE SODIUM
     Indication: Acute lymphocytic leukaemia
     Dosage: 12 MG, 1X/DAY
     Route: 037
     Dates: start: 20250318, end: 20250318
  3. PEGASPARGASE [Suspect]
     Active Substance: PEGASPARGASE
     Indication: Acute lymphocytic leukaemia
     Dosage: 3.9 ML, 1X/DAY
     Route: 041
     Dates: start: 20250320, end: 20250320
  4. DEXRAZOXANE [Suspect]
     Active Substance: DEXRAZOXANE
     Indication: Acute lymphocytic leukaemia
     Dosage: 580 MG, 1X/DAY
     Route: 041
     Dates: start: 20250319, end: 20250319
  5. MITOXANTRONE HYDROCHLORIDE [Suspect]
     Active Substance: MITOXANTRONE HYDROCHLORIDE
     Indication: Acute lymphocytic leukaemia
     Dosage: 11.5 MG, 1X/DAY
     Route: 041
     Dates: start: 20250319, end: 20250319
  6. VINCRISTINE SULFATE [Suspect]
     Active Substance: VINCRISTINE SULFATE
     Indication: Acute lymphocytic leukaemia
     Dosage: 1.7 MG, 1X/DAY
     Route: 042
     Dates: start: 20250321, end: 20250321
  7. DEXAMETHASONE SODIUM PHOSPHATE [Concomitant]
     Active Substance: DEXAMETHASONE SODIUM PHOSPHATE
     Indication: Acute lymphocytic leukaemia
     Dosage: 2.5 MG, 1X/DAY
     Route: 037
     Dates: start: 20250318, end: 20250318

REACTIONS (2)
  - Myelosuppression [Not Recovered/Not Resolved]
  - Hepatic function abnormal [Not Recovered/Not Resolved]

NARRATIVE: CASE EVENT DATE: 20250324
